FAERS Safety Report 10137464 (Version 2)
Quarter: 2014Q2

REPORT INFORMATION
  Report Type: Spontaneous
  Country: US (occurrence: US)
  Receive Date: 20140429
  Receipt Date: 20140604
  Transmission Date: 20141212
  Serious: Yes (Hospitalization)
  Sender: FDA-Public Use
  Company Number: US-SA-2014SA051659

PATIENT
  Age: 63 Year
  Sex: Female
  Weight: 86.6 kg

DRUGS (8)
  1. LASIX [Suspect]
     Indication: CARDIAC FAILURE CONGESTIVE
     Route: 048
     Dates: start: 20000829, end: 20140201
  2. SUNITINIB MALATE [Suspect]
     Indication: METASTATIC RENAL CELL CARCINOMA
     Route: 048
     Dates: start: 20101021, end: 20120813
  3. SUNITINIB MALATE [Suspect]
     Indication: METASTATIC RENAL CELL CARCINOMA
     Route: 048
     Dates: start: 20120905, end: 20140127
  4. DALTEPARIN SODIUM [Suspect]
     Indication: METASTATIC RENAL CELL CARCINOMA
     Route: 058
     Dates: start: 20101124, end: 20140201
  5. VITAMIN D [Concomitant]
     Indication: SUPPLEMENTATION THERAPY
     Dates: start: 20070927
  6. FAMOTIDINE [Concomitant]
     Indication: HYPERTENSION
     Dates: start: 201305
  7. CANDESARTAN [Concomitant]
     Indication: HYPERTENSION
     Dates: start: 201208
  8. LEVOTHYROXINE [Concomitant]
     Dates: start: 20130218

REACTIONS (9)
  - Syncope [Recovered/Resolved]
  - Dehydration [Recovered/Resolved]
  - Nausea [Recovered/Resolved]
  - Vomiting [Recovered/Resolved]
  - Diarrhoea [Recovered/Resolved]
  - Hypotension [Recovered/Resolved]
  - Pyrexia [Recovered/Resolved]
  - Rash [Recovered/Resolved]
  - Renal failure [Recovered/Resolved]
